FAERS Safety Report 21103709 (Version 2)
Quarter: 2022Q3

REPORT INFORMATION
  Report Type: Report from Study
  Country: US (occurrence: US)
  Receive Date: 20220720
  Receipt Date: 20220803
  Transmission Date: 20221026
  Serious: Yes (Hospitalization, Other)
  Sender: FDA-Public Use
  Company Number: US-NOVARTISPH-NVSC2022US160475

PATIENT
  Sex: Male
  Weight: 90.703 kg

DRUGS (1)
  1. PLUVICTO [Suspect]
     Active Substance: LUTETIUM LU-177 VIPIVOTIDE TETRAXETAN
     Indication: Prostate cancer metastatic
     Dosage: 7.4 GBQ Q 6 WEEKS
     Route: 065
     Dates: start: 20220413, end: 20220413

REACTIONS (2)
  - Myocardial infarction [Recovered/Resolved with Sequelae]
  - Ill-defined disorder [Unknown]
